FAERS Safety Report 6869079-1 (Version None)
Quarter: 2010Q3

REPORT INFORMATION
  Report Type: 
  Country: None (occurrence: None)
  Receive Date: 20100722
  Receipt Date: 20080709
  Transmission Date: 20110219
  Serious: No
  Sender: FDA-Public Use
  Company Number: US-PFIZER INC-2008058171

PATIENT
  Sex: Female

DRUGS (6)
  1. CHANTIX [Suspect]
     Indication: SMOKING CESSATION THERAPY
     Dates: start: 20080707
  2. NITROFURANTOIN [Interacting]
     Indication: URINARY TRACT INFECTION
  3. SYNTHROID [Concomitant]
  4. BABYPRIN [Concomitant]
  5. CALTRATE [Concomitant]
  6. VITAMINS [Concomitant]

REACTIONS (2)
  - DRUG INTERACTION [None]
  - NAUSEA [None]
